FAERS Safety Report 19769193 (Version 2)
Quarter: 2021Q3

REPORT INFORMATION
  Report Type: Spontaneous
  Country: CN (occurrence: CN)
  Receive Date: 20210831
  Receipt Date: 20210918
  Transmission Date: 20211014
  Serious: Yes (Death, Life-Threatening)
  Sender: FDA-Public Use
  Company Number: CN-ACCORD-236442

PATIENT
  Age: 56 Year
  Sex: Female
  Weight: 65 kg

DRUGS (8)
  1. DOCETAXEL. [Suspect]
     Active Substance: DOCETAXEL
     Indication: BREAST CANCER
     Dosage: DOSE: 126 MILLIGRAM, SINGLE
     Route: 041
     Dates: start: 20210803
  2. PYROTINIB [Suspect]
     Active Substance: PYROTINIB
     Indication: BREAST CANCER
     Route: 048
     Dates: start: 20210803, end: 202108
  3. DEXAMETHASONE. [Concomitant]
     Active Substance: DEXAMETHASONE
     Dates: start: 20210803, end: 202108
  4. IBANDRONIC ACID. [Concomitant]
     Active Substance: IBANDRONIC ACID
     Indication: METASTASES TO BONE
     Dosage: STRENGTH: 6 MG,ONCE
     Route: 041
     Dates: start: 20210804, end: 20210804
  5. CELECOXIB. [Concomitant]
     Active Substance: CELECOXIB
     Indication: METASTASES TO BONE
     Dosage: 0.2 G, EVERY 12 HOURS
     Route: 048
     Dates: start: 20210804
  6. INSULIN [Concomitant]
     Active Substance: INSULIN NOS
     Indication: DIABETES MELLITUS
     Dosage: 8 IU, 10 IU, 4 IU ONCE ON 02?AUG?2021, ?10 IU, ONCE ON 04?AUG?2021
     Route: 058
     Dates: start: 20210802, end: 20210804
  7. HANQUYOU (TRASTUZUMAB) [Suspect]
     Active Substance: TRASTUZUMAB
     Indication: BREAST CANCER
     Dosage: STRENGTH: 150 MILLIGRAM?DOSE: 520 MILLIGRAM, SINGLE
     Route: 041
     Dates: start: 20210803
  8. NIFEDIPINE. [Concomitant]
     Active Substance: NIFEDIPINE
     Indication: HYPERTENSION
     Dosage: STRENGTH: 30 MG?PO, QD
     Route: 048
     Dates: start: 20210802, end: 202108

REACTIONS (3)
  - Diabetic hyperosmolar coma [Fatal]
  - Neutrophil count decreased [Unknown]
  - White blood cell count decreased [Unknown]

NARRATIVE: CASE EVENT DATE: 20210812
